FAERS Safety Report 8575242-4 (Version None)
Quarter: 2012Q3

REPORT INFORMATION
  Report Type: 
  Country: None (occurrence: None)
  Receive Date: 20120807
  Receipt Date: 20120730
  Transmission Date: 20120928
  Serious: No
  Sender: FDA-Public Use
  Company Number: US-B.I. PHARMACEUTICALS,INC./RIDGEFIELD-2012-BP-17141BP

PATIENT
  Sex: Male
  Weight: 34 kg

DRUGS (4)
  1. SPIRIVA [Suspect]
     Dosage: 18 MCG
     Route: 055
     Dates: start: 20120601
  2. SPIRIVA [Suspect]
     Route: 048
     Dates: start: 20120730, end: 20120730
  3. ARICEPT [Concomitant]
     Indication: COGNITIVE DISORDER
     Dosage: 5 MG
     Route: 048
     Dates: start: 20120601
  4. NEURONTIN [Concomitant]
     Indication: NEUROPATHY PERIPHERAL
     Dosage: 180 MG
     Route: 048
     Dates: start: 20120601

REACTIONS (1)
  - INCORRECT ROUTE OF DRUG ADMINISTRATION [None]
